FAERS Safety Report 15517698 (Version 1)
Quarter: 2018Q4

REPORT INFORMATION
  Report Type: Spontaneous
  Country: US (occurrence: US)
  Receive Date: 20181011
  Receipt Date: 20181011
  Transmission Date: 20190205
  Serious: No
  Sender: FDA-Public Use
  Company Number: None

PATIENT
  Age: 42 Year
  Sex: Female

DRUGS (2)
  1. OPSUMIT [Concomitant]
     Active Substance: MACITENTAN
  2. ADCIRCA [Suspect]
     Active Substance: TADALAFIL
     Dates: start: 201608

REACTIONS (4)
  - Pain [None]
  - Fatigue [None]
  - Headache [None]
  - Weight increased [None]

NARRATIVE: CASE EVENT DATE: 20181010
